FAERS Safety Report 6303911-5 (Version None)
Quarter: 2009Q3

REPORT INFORMATION
  Report Type: 
  Country: None (occurrence: None)
  Receive Date: 20090805
  Receipt Date: 19890612
  Transmission Date: 20100115
  Serious: No
  Sender: FDA-Public Use
  Company Number: 8012327

PATIENT
  Sex: Male

DRUGS (1)
  1. OLSALAZINE SODIUM [Suspect]
     Indication: COLITIS ULCERATIVE
     Dates: start: 19890402, end: 19890426

REACTIONS (1)
  - NEUROPATHY PERIPHERAL [None]
